FAERS Safety Report 10181517 (Version 1)
Quarter: 2014Q2

REPORT INFORMATION
  Report Type: Report from Study
  Country: US (occurrence: US)
  Receive Date: 20140519
  Receipt Date: 20140519
  Transmission Date: 20141212
  Serious: Yes (Other)
  Sender: FDA-Public Use
  Company Number: US-VIIV HEALTHCARE LIMITED-A1073208A

PATIENT
  Age: 49 Year
  Sex: Female

DRUGS (3)
  1. COMBIVIR [Suspect]
     Indication: HIV INFECTION
     Dosage: 2TAB PER DAY
     Route: 048
     Dates: start: 20130823, end: 20131016
  2. KALETRA [Suspect]
     Indication: HIV INFECTION
     Dosage: 4U PER DAY
     Route: 048
     Dates: start: 20100615
  3. TRUVADA [Suspect]
     Indication: HIV INFECTION
     Dosage: 1U PER DAY
     Route: 048
     Dates: start: 20100615, end: 20130822

REACTIONS (2)
  - Abortion spontaneous [Unknown]
  - Exposure during pregnancy [Unknown]
